FAERS Safety Report 6557839-6 (Version None)
Quarter: 2010Q1

REPORT INFORMATION
  Report Type: 
  Country: None (occurrence: None)
  Receive Date: 20100129
  Receipt Date: 20100122
  Transmission Date: 20100710
  Serious: Yes (Hospitalization)
  Sender: FDA-Public Use
  Company Number: CHPA2010US01770

PATIENT
  Age: 66 Year
  Sex: Female
  Weight: 97.959 kg

DRUGS (1)
  1. PREVACID 24 HR [Suspect]
     Dosage: 30 MG, QD
     Route: 048
     Dates: start: 20090101, end: 20100119

REACTIONS (8)
  - HAEMOGLOBIN DECREASED [None]
  - INTENTIONAL DRUG MISUSE [None]
  - ISCHAEMIA [None]
  - OVERDOSE [None]
  - PLATELET COUNT DECREASED [None]
  - RED BLOOD CELL COUNT DECREASED [None]
  - TRANSFUSION [None]
  - WHITE BLOOD CELL COUNT DECREASED [None]
